FAERS Safety Report 4630024-0 (Version None)
Quarter: 2005Q2

REPORT INFORMATION
  Report Type: 
  Country: None (occurrence: None)
  Receive Date: 20050408
  Receipt Date: 20050211
  Transmission Date: 20051028
  Serious: Yes (Death)
  Sender: FDA-Public Use
  Company Number: ES-ROCHE-395513

PATIENT
  Age: 62 Year
  Sex: Male
  Weight: 79 kg

DRUGS (4)
  1. PEGASYS [Suspect]
     Dosage: DOSE WAS REPORTED AS 180.
     Route: 058
     Dates: start: 20031201, end: 20040419
  2. PEGASYS [Suspect]
     Dosage: DOSE REPORTED AS 135.
     Route: 058
     Dates: start: 20040419, end: 20041201
  3. RIBAVIRIN [Concomitant]
     Dosage: DOSE REPORTED AS 1000 FROM 01 DEC 2003 TO 19 APR 2004, AND DOSE OF 750 FROM 20 APR 2004 TO 01 DEC 2+
     Route: 048
     Dates: start: 20031201, end: 20041201
  4. SINTROM [Concomitant]
     Indication: HEART VALVE OPERATION
     Dosage: LONG-TERM TREATMENT.
     Route: 048
     Dates: end: 20041226

REACTIONS (2)
  - CEREBRAL HAEMATOMA [None]
  - THROMBOTIC THROMBOCYTOPENIC PURPURA [None]
